FAERS Safety Report 10202204 (Version 2)
Quarter: 2014Q2

REPORT INFORMATION
  Report Type: Spontaneous
  Country: US (occurrence: US)
  Receive Date: 20140528
  Receipt Date: 20140528
  Transmission Date: 20141212
  Serious: Yes (Hospitalization)
  Sender: FDA-Public Use
  Company Number: US-BAXTER-2014BAX024277

PATIENT
  Age: 49 Year
  Sex: Female

DRUGS (1)
  1. 0.9% SODIUM CHLORIDE INJECTION [Suspect]
     Indication: HAEMODIALYSIS
     Route: 042
     Dates: start: 2012

REACTIONS (3)
  - Wound [Recovering/Resolving]
  - Gangrene [Recovering/Resolving]
  - Poor peripheral circulation [Recovering/Resolving]
